FAERS Safety Report 20457287 (Version 1)
Quarter: 2022Q1

REPORT INFORMATION
  Report Type: Report from Study
  Country: DE (occurrence: DE)
  Receive Date: 20220210
  Receipt Date: 20220210
  Transmission Date: 20220424
  Serious: Yes (Death)
  Sender: FDA-Public Use
  Company Number: DE-JNJFOC-20220153817

PATIENT
  Age: 67 Year
  Sex: Male

DRUGS (2)
  1. DEXAMETHASONE [Suspect]
     Active Substance: DEXAMETHASONE
     Indication: Amyloidosis
     Route: 065
     Dates: start: 20210223, end: 20210223
  2. VELCADE [Suspect]
     Active Substance: BORTEZOMIB
     Indication: Amyloidosis
     Route: 065
     Dates: start: 20210223, end: 20210223

REACTIONS (3)
  - Cardiac death [Fatal]
  - Off label use [Unknown]
  - Product use in unapproved indication [Unknown]
